FAERS Safety Report 10738707 (Version 1)
Quarter: 2015Q1

REPORT INFORMATION
  Report Type: Spontaneous
  Country: US (occurrence: US)
  Receive Date: 20150126
  Receipt Date: 20150126
  Transmission Date: 20150721
  Serious: No
  Sender: FDA-Public Use
  Company Number: US-DYAX CORP.-2014DX000159

PATIENT
  Sex: Female

DRUGS (3)
  1. KALBITOR [Suspect]
     Active Substance: ECALLANTIDE
     Indication: HEREDITARY ANGIOEDEMA
     Route: 058
     Dates: start: 20140819, end: 20140819
  2. KALBITOR [Suspect]
     Active Substance: ECALLANTIDE
     Route: 058
  3. KALBITOR [Suspect]
     Active Substance: ECALLANTIDE
     Route: 058
     Dates: start: 20140818, end: 20140818

REACTIONS (3)
  - Drug resistance [Unknown]
  - Hereditary angioedema [Unknown]
  - Extra dose administered [Unknown]
